FAERS Safety Report 20328339 (Version 1)
Quarter: 2022Q1

REPORT INFORMATION
  Report Type: Spontaneous
  Country: US (occurrence: None)
  Receive Date: 20220111
  Receipt Date: 20220111
  Transmission Date: 20220423
  Serious: Yes (Other)
  Sender: FDA-Public Use
  Company Number: None

PATIENT
  Age: 32 Year
  Sex: Female
  Weight: 63.5 kg

DRUGS (5)
  1. ADRIAMYCIN [Suspect]
     Active Substance: DOXORUBICIN HYDROCHLORIDE
     Indication: Hodgkin^s disease
     Route: 042
     Dates: start: 20210209, end: 20210323
  2. BLEOMYCIN [Suspect]
     Active Substance: BLEOMYCIN SULFATE
  3. VINBLASTINE [Suspect]
     Active Substance: VINBLASTINE
  4. DACARBAZINE [Suspect]
     Active Substance: DACARBAZINE
  5. NIVOLUMAB [Suspect]
     Active Substance: NIVOLUMAB
     Indication: Hodgkin^s disease
     Route: 042
     Dates: start: 20210412, end: 20210622

REACTIONS (1)
  - Pregnancy [None]

NARRATIVE: CASE EVENT DATE: 20211018
